FAERS Safety Report 18665971 (Version 1)
Quarter: 2020Q4

REPORT INFORMATION
  Report Type: Spontaneous
  Country: DK (occurrence: DK)
  Receive Date: 20201226
  Receipt Date: 20201226
  Transmission Date: 20210114
  Serious: Yes (Hospitalization)
  Sender: FDA-Public Use
  Company Number: DK-TEVA-2020-DK-1860708

PATIENT
  Age: 86 Year
  Sex: Male

DRUGS (6)
  1. PARACETAMOL ORIFARM [Concomitant]
     Indication: PAIN
     Dosage: UNIT DOSE : 1000 MG AS NEEDED, MAX 4 TIMES A DAY
     Route: 048
     Dates: start: 20200504
  2. CITALOPRAM [Concomitant]
     Active Substance: CITALOPRAM HYDROBROMIDE
     Indication: DEPRESSION
     Dosage: UNIT DOSE : 10 MG
     Route: 048
     Dates: start: 20141018, end: 20201120
  3. ACETYLCYSTEINE. [Concomitant]
     Active Substance: ACETYLCYSTEINE
     Indication: PRODUCTIVE COUGH
     Dosage: UNIT DOSE : 400 MG
     Route: 048
     Dates: start: 20190909, end: 20201119
  4. METFORMIN ACTAVIS [Concomitant]
     Active Substance: METFORMIN HYDROCHLORIDE
     Indication: TYPE 2 DIABETES MELLITUS
     Dosage: UNIT DOSE : 1000 MG
     Route: 048
     Dates: start: 20200419
  5. SIMVASTATIN SANDOZ [Concomitant]
     Active Substance: SIMVASTATIN
     Indication: HYPERCHOLESTEROLAEMIA
     Dosage: UNIT DOSE : 20 MG
     Route: 048
     Dates: start: 20190909
  6. ENALAPRIL TEVA [Suspect]
     Active Substance: ENALAPRIL MALEATE
     Indication: HYPERTENSION
     Dosage: UNIT DOSE : 20 MG
     Route: 048
     Dates: start: 20200419, end: 20201120

REACTIONS (1)
  - Hyponatraemia [Not Recovered/Not Resolved]

NARRATIVE: CASE EVENT DATE: 202004
